FAERS Safety Report 24010124 (Version 1)
Quarter: 2024Q2

REPORT INFORMATION
  Report Type: Spontaneous
  Country: US (occurrence: US)
  Receive Date: 20240625
  Receipt Date: 20240625
  Transmission Date: 20240715
  Serious: No
  Sender: FDA-Public Use
  Company Number: US-CSLP-15905380063-V11392665-281

PATIENT
  Age: 66 Year
  Sex: Female

DRUGS (2)
  1. ANTICOAGULANT SODIUM CITRATE [Suspect]
     Active Substance: SODIUM CITRATE
     Indication: Anticoagulant therapy
     Route: 050
     Dates: start: 20240606, end: 20240606
  2. SERTRALINE [Concomitant]
     Active Substance: SERTRALINE HYDROCHLORIDE
     Indication: Depression

REACTIONS (7)
  - Flushing [Recovered/Resolved]
  - Thirst [Recovered/Resolved]
  - Feeling hot [Recovered/Resolved]
  - Pain [Recovered/Resolved]
  - Muscle spasms [Recovered/Resolved]
  - Hyperhidrosis [Recovered/Resolved]
  - Restlessness [Recovered/Resolved]

NARRATIVE: CASE EVENT DATE: 20240606
